FAERS Safety Report 5613800-7 (Version None)
Quarter: 2008Q1

REPORT INFORMATION
  Report Type: 
  Country: None (occurrence: None)
  Receive Date: 20080130
  Receipt Date: 20080114
  Transmission Date: 20080703
  Serious: Yes (Death)
  Sender: FDA-Public Use
  Company Number: 2008S1000149

PATIENT
  Age: 45 Year
  Sex: Female

DRUGS (3)
  1. METHADONE HCL [Suspect]
     Dosage: ;PO
     Route: 048
     Dates: end: 20060101
  2. ETHANOL [Suspect]
     Dosage: ;PO
     Route: 048
     Dates: end: 20060101
  3. SUMATRIPTAN SUCCINATE [Suspect]
     Dosage: ;PO
     Route: 048
     Dates: end: 20060101

REACTIONS (1)
  - DEATH [None]
